FAERS Safety Report 16981001 (Version 1)
Quarter: 2019Q4

REPORT INFORMATION
  Report Type: Spontaneous
  Country: US (occurrence: US)
  Receive Date: 20191031
  Receipt Date: 20191031
  Transmission Date: 20200122
  Serious: Yes (Other)
  Sender: FDA-Public Use
  Company Number: US-PFIZER INC-2019454045

PATIENT

DRUGS (1)
  1. ROBITUSSIN DX DRY COUGH FORTE [Suspect]
     Active Substance: DEXTROMETHORPHAN
     Indication: COUGH
     Dosage: 750 MG, UNK

REACTIONS (3)
  - Anger [Unknown]
  - Anxiety [Unknown]
  - Drug abuse [Unknown]
